FAERS Safety Report 15848345 (Version 2)
Quarter: 2019Q1

REPORT INFORMATION
  Report Type: Spontaneous
  Country: US (occurrence: US)
  Receive Date: 20190121
  Receipt Date: 20190129
  Transmission Date: 20190417
  Serious: No
  Sender: FDA-Public Use
  Company Number: US-PFIZER INC-2019025278

PATIENT
  Sex: Female

DRUGS (2)
  1. LYRICA [Suspect]
     Active Substance: PREGABALIN
     Indication: ARTHRALGIA
     Dosage: UNK
  2. LYRICA [Suspect]
     Active Substance: PREGABALIN
     Dosage: 50 MG, 2X/DAY

REACTIONS (6)
  - Drug hypersensitivity [Unknown]
  - Tongue disorder [Unknown]
  - Paraesthesia [Unknown]
  - Tongue blistering [Unknown]
  - Drug effective for unapproved indication [Unknown]
  - Lip swelling [Unknown]
